FAERS Safety Report 5068349-X (Version None)
Quarter: 2006Q3

REPORT INFORMATION
  Report Type: 
  Country: None (occurrence: None)
  Receive Date: 20060802
  Receipt Date: 20050811
  Transmission Date: 20061208
  Serious: No
  Sender: FDA-Public Use
  Company Number: US-BRISTOL-MYERS SQUIBB COMPANY-13073713

PATIENT
  Age: 64 Year
  Sex: Female
  Weight: 189 kg

DRUGS (8)
  1. COUMADIN [Suspect]
     Indication: THROMBOSIS
     Dates: start: 20020101
  2. ACIPHEX [Concomitant]
  3. CELEBREX [Concomitant]
  4. K-DUR 10 [Concomitant]
  5. LASIX [Concomitant]
  6. MONOPRIL [Concomitant]
  7. VITAMIN E [Concomitant]
  8. ZETIA [Concomitant]

REACTIONS (1)
  - INTERNATIONAL NORMALISED RATIO INCREASED [None]
